FAERS Safety Report 10255575 (Version 3)
Quarter: 2014Q3

REPORT INFORMATION
  Report Type: Spontaneous
  Country: CA (occurrence: CA)
  Receive Date: 20140624
  Receipt Date: 20140903
  Transmission Date: 20150326
  Serious: Yes (Other)
  Sender: FDA-Public Use
  Company Number: CHPA2014CA008049

PATIENT
  Age: 59 Year
  Sex: Male

DRUGS (2)
  1. LAMISIL [Suspect]
     Active Substance: TERBINAFINE HYDROCHLORIDE
     Dosage: UNK
     Route: 061
  2. LAMISIL [Suspect]
     Active Substance: TERBINAFINE HYDROCHLORIDE
     Indication: FUNGAL INFECTION
     Dosage: UNK, BID
     Route: 061
     Dates: start: 20140508

REACTIONS (4)
  - Application site erythema [Unknown]
  - Drug ineffective [Unknown]
  - Application site burn [Unknown]
  - Application site pain [Unknown]

NARRATIVE: CASE EVENT DATE: 20140508
